FAERS Safety Report 6504566-7 (Version None)
Quarter: 2009Q4

REPORT INFORMATION
  Report Type: 
  Country: None (occurrence: None)
  Receive Date: 20091215
  Receipt Date: 20091211
  Transmission Date: 20100525
  Serious: Yes (Hospitalization)
  Sender: FDA-Public Use
  Company Number: 09-528

PATIENT
  Age: 71 Year
  Sex: Female

DRUGS (1)
  1. ERGOCALCIFEROL [Suspect]
     Indication: VITAMIN D DEFICIENCY
     Dosage: ORAL PRIOR  TO  11/26/09
     Route: 048

REACTIONS (1)
  - ANAPHYLACTIC SHOCK [None]
